FAERS Safety Report 13266316 (Version 3)
Quarter: 2017Q1

REPORT INFORMATION
  Report Type: Report from Study
  Country: AR (occurrence: AR)
  Receive Date: 20170223
  Receipt Date: 20170331
  Transmission Date: 20170428
  Serious: Yes (Hospitalization, Disabling, Other)
  Sender: FDA-Public Use
  Company Number: PHHY2016AR180682

PATIENT
  Age: 62 Year
  Sex: Female

DRUGS (10)
  1. EXFORGE [Suspect]
     Active Substance: AMLODIPINE BESYLATE\VALSARTAN
     Dosage: 1 DF, QD (AMLODIPINE 5MG, VALSARTAN 160 MG)
     Route: 065
     Dates: start: 201701
  2. EXFORGE [Suspect]
     Active Substance: AMLODIPINE BESYLATE\VALSARTAN
     Dosage: 0.5 DF, QD (AMLODIPINE 5MG, VALSARTAN 160 MG)
     Route: 065
     Dates: start: 201701
  3. EXFORGE [Suspect]
     Active Substance: AMLODIPINE BESYLATE\VALSARTAN
     Indication: PERIPHERAL ARTERIAL OCCLUSIVE DISEASE
     Dosage: 0.5 DF, QD (AMLODIPINE 5MG, VALSARTAN 160 MG)
     Route: 065
     Dates: end: 20160824
  4. EXFORGE [Suspect]
     Active Substance: AMLODIPINE BESYLATE\VALSARTAN
     Indication: HYPERTENSION
     Dosage: 3 DF, UNK
     Route: 065
  5. EXFORGE [Suspect]
     Active Substance: AMLODIPINE BESYLATE\VALSARTAN
     Dosage: 1 DF (AMLODIPINE 5MG, VALSARTAN 160 MG), UNK
     Route: 065
     Dates: start: 201608, end: 201608
  6. ATENOLOL. [Suspect]
     Active Substance: ATENOLOL
     Indication: HYPERTENSION
     Dosage: 5 MG, (WHILE FASTING)
     Route: 065
  7. MEPREDNISONE [Concomitant]
     Active Substance: MEPREDNISONE
     Indication: PRODUCT USED FOR UNKNOWN INDICATION
     Dosage: 8 MG, QD
     Route: 065
  8. ALPLAX [Concomitant]
     Indication: PRODUCT USED FOR UNKNOWN INDICATION
     Route: 065
  9. AMLODIPINE [Suspect]
     Active Substance: AMLODIPINE BESYLATE
     Indication: HYPERTENSION
     Dosage: 10 MG, QD (WHILE FASTING)
     Route: 065
  10. MEPREDNISONE [Concomitant]
     Active Substance: MEPREDNISONE
     Dosage: 40 MG, QD (DURING THE HOSPITALIZATION)
     Route: 065

REACTIONS (26)
  - Pneumonia viral [Recovered/Resolved]
  - Drug intolerance [Recovering/Resolving]
  - Bronchitis [Recovered/Resolved]
  - Anaemia [Unknown]
  - Malaise [Unknown]
  - Respiratory tract infection fungal [Recovered/Resolved]
  - Abasia [Unknown]
  - Bone disorder [Unknown]
  - Atrophy [Recovering/Resolving]
  - Peripheral swelling [Unknown]
  - Pneumonia fungal [Recovered/Resolved]
  - Azotaemia [Unknown]
  - Nervousness [Recovering/Resolving]
  - Renal impairment [Unknown]
  - Mobility decreased [Recovering/Resolving]
  - Urinary retention [Unknown]
  - Dyspnoea [Recovered/Resolved]
  - Diabetes mellitus [Unknown]
  - Blood pressure systolic increased [Recovered/Resolved]
  - Visual impairment [Unknown]
  - Drug prescribing error [Unknown]
  - Wrong technique in product usage process [Unknown]
  - Respiratory disorder [Recovered/Resolved]
  - Pneumonia bacterial [Recovered/Resolved]
  - Immunodeficiency [Unknown]
  - Arthralgia [Unknown]

NARRATIVE: CASE EVENT DATE: 20160824
